FAERS Safety Report 7639888-X (Version None)
Quarter: 2011Q3

REPORT INFORMATION
  Report Type: 
  Country: None (occurrence: None)
  Receive Date: 20110727
  Receipt Date: 20110714
  Transmission Date: 20111222
  Serious: Yes (Other)
  Sender: FDA-Public Use
  Company Number: PHEH2009US02468

PATIENT

DRUGS (7)
  1. AREDIA [Suspect]
     Indication: NEOPLASM MALIGNANT
  2. ONDANSERTRON HYDROCHLORIDE [Concomitant]
  3. CLEOCIN HYDROCHLORIDE [Concomitant]
  4. CHLORHEXIDINE GLUCONATE [Concomitant]
  5. ZOMETA [Suspect]
     Indication: NEOPLASM MALIGNANT
  6. PREVACID [Concomitant]
  7. CIPROFLOXACIN HYDROCHLORIDE [Concomitant]

REACTIONS (11)
  - PAIN [None]
  - EATING DISORDER [None]
  - INJURY [None]
  - VISUAL IMPAIRMENT [None]
  - ANXIETY [None]
  - OSTEONECROSIS [None]
  - ANHEDONIA [None]
  - SINUSITIS [None]
  - MENINGIOMA [None]
  - DEFORMITY [None]
  - DISABILITY [None]
